FAERS Safety Report 6784354-7 (Version None)
Quarter: 2010Q2

REPORT INFORMATION
  Report Type: 
  Country: None (occurrence: None)
  Receive Date: 20100622
  Receipt Date: 20100615
  Transmission Date: 20101027
  Serious: Yes (Death)
  Sender: FDA-Public Use
  Company Number: JP-MERCK-1006USA03030

PATIENT
  Age: 73 Year
  Sex: Male

DRUGS (3)
  1. PEPCID RPD [Suspect]
     Route: 048
     Dates: start: 20100513
  2. SERENACE [Suspect]
     Route: 048
  3. PHENYTOIN SODIUM [Suspect]
     Route: 048

REACTIONS (1)
  - AGRANULOCYTOSIS [None]
